FAERS Safety Report 7793715-9 (Version None)
Quarter: 2011Q4

REPORT INFORMATION
  Report Type: 
  Country: None (occurrence: None)
  Receive Date: 20111003
  Receipt Date: 20110928
  Transmission Date: 20120403
  Serious: Yes (Other)
  Sender: FDA-Public Use
  Company Number: US-ABBOTT-11P-163-0859179-00

PATIENT
  Age: 58 Year
  Sex: Male

DRUGS (8)
  1. CAPTOPRIL [Concomitant]
     Indication: PRODUCT USED FOR UNKNOWN INDICATION
  2. HUMIRA [Suspect]
     Indication: PSORIATIC ARTHROPATHY
  3. LISINOPRIL [Concomitant]
     Indication: CARDIAC DISORDER
  4. METOPROLOL TARTRATE [Concomitant]
     Indication: PRODUCT USED FOR UNKNOWN INDICATION
  5. ASPIRIN [Concomitant]
     Indication: CARDIOVASCULAR EVENT PROPHYLAXIS
  6. HUMIRA [Suspect]
     Indication: PSORIASIS
     Dates: start: 20080101
  7. LISINOPRIL [Concomitant]
     Indication: HYPERTENSION
  8. WELCHOL [Concomitant]
     Indication: BLOOD CHOLESTEROL INCREASED

REACTIONS (2)
  - ARTHRALGIA [None]
  - CEREBROVASCULAR ACCIDENT [None]
